FAERS Safety Report 6925553-0 (Version None)
Quarter: 2010Q3

REPORT INFORMATION
  Report Type: 
  Country: None (occurrence: None)
  Receive Date: 20100813
  Receipt Date: 20100813
  Transmission Date: 20110219
  Serious: Yes (Other)
  Sender: FDA-Public Use
  Company Number: None

PATIENT
  Age: 25 Year
  Sex: Female

DRUGS (1)
  1. BONIVA [Suspect]
     Dates: start: 20090101

REACTIONS (6)
  - GAIT DISTURBANCE [None]
  - INFLUENZA LIKE ILLNESS [None]
  - MIGRAINE [None]
  - MUSCULAR WEAKNESS [None]
  - SENSORY LOSS [None]
  - TOOTH FRACTURE [None]
